FAERS Safety Report 6470188-X (Version None)
Quarter: 2009Q4

REPORT INFORMATION
  Report Type: 
  Country: None (occurrence: None)
  Receive Date: 20091203
  Receipt Date: 20071114
  Transmission Date: 20100525
  Serious: Yes (Other)
  Sender: FDA-Public Use
  Company Number: TR-ELI_LILLY_AND_COMPANY-TR200711004781

PATIENT
  Sex: Female
  Weight: 51 kg

DRUGS (3)
  1. HUMALOG MIX 75/25 [Suspect]
     Indication: TYPE 1 DIABETES MELLITUS
     Dosage: 20 UNITS/MORNING AND 16 UNITS/EVENING
     Route: 058
     Dates: start: 20070801
  2. HUMALOG MIX 75/25 [Suspect]
     Dosage: 16 U, EACH EVENING
     Route: 058
     Dates: start: 20070801
  3. MULTI-VITAMIN [Concomitant]
     Dosage: UNK UNK, 2/D
     Route: 065
     Dates: start: 20070801, end: 20071001

REACTIONS (3)
  - CYST [None]
  - HEADACHE [None]
  - HEPATIC STEATOSIS [None]
